FAERS Safety Report 13700898 (Version 3)
Quarter: 2017Q3

REPORT INFORMATION
  Report Type: Spontaneous
  Country: DE (occurrence: DE)
  Receive Date: 20170629
  Receipt Date: 20170912
  Transmission Date: 20171127
  Serious: Yes (Death, Other)
  Sender: FDA-Public Use
  Company Number: DE-REGENERON PHARMACEUTICALS, INC.-2017-17647

PATIENT

DRUGS (4)
  1. EYLEA [Suspect]
     Active Substance: AFLIBERCEPT
     Indication: MACULAR DEGENERATION
     Dosage: 4 DF, UNK
     Route: 031
     Dates: start: 20170303, end: 20170303
  2. EYLEA [Suspect]
     Active Substance: AFLIBERCEPT
     Dosage: 4 DF, UNK
     Route: 031
     Dates: start: 20170608, end: 20170608
  3. EYLEA [Suspect]
     Active Substance: AFLIBERCEPT
     Dosage: 4DF, UNK
     Route: 031
     Dates: start: 20170407, end: 20170407
  4. EYLEA [Suspect]
     Active Substance: AFLIBERCEPT
     Dosage: 4 DF, UNK
     Route: 031
     Dates: start: 20170504, end: 20170504

REACTIONS (1)
  - Aortic rupture [Fatal]

NARRATIVE: CASE EVENT DATE: 201706
